FAERS Safety Report 6700934-9 (Version None)
Quarter: 2010Q2

REPORT INFORMATION
  Report Type: 
  Country: None (occurrence: None)
  Receive Date: 20100428
  Receipt Date: 20100420
  Transmission Date: 20101027
  Serious: Yes (Hospitalization)
  Sender: FDA-Public Use
  Company Number: PHHO2010BE05296

PATIENT
  Sex: Female
  Weight: 72 kg

DRUGS (5)
  1. MYFORTIC [Suspect]
     Indication: RENAL TRANSPLANT
     Dosage: 720 MG / DAY
     Route: 048
     Dates: start: 20091217, end: 20100330
  2. NEORAL [Suspect]
     Indication: RENAL TRANSPLANT
     Dosage: 135 MG / DAY
     Route: 048
     Dates: start: 20091217
  3. NO TREATMENT RECEIVED NOMED [Suspect]
     Indication: RENAL TRANSPLANT
     Dosage: UNK
  4. METHYLPREDNISOLONE [Suspect]
     Indication: RENAL TRANSPLANT
     Dosage: 4 MG / DAY
     Route: 048
     Dates: start: 20091217
  5. COTRIM [Concomitant]

REACTIONS (1)
  - NEUTROPENIA [None]
